FAERS Safety Report 14143457 (Version 2)
Quarter: 2019Q2

REPORT INFORMATION
  Report Type: Spontaneous
  Country: GB (occurrence: GB)
  Receive Date: 20171030
  Receipt Date: 20190606
  Transmission Date: 20190711
  Serious: Yes (Other)
  Sender: FDA-Public Use
  Company Number: GB-MYLANLABS-2017M1067693

PATIENT
  Age: 76 Year
  Sex: Female
  Weight: 53.98 kg

DRUGS (8)
  1. APIXABAN [Concomitant]
     Active Substance: APIXABAN
     Dosage: 5 MG BD
  2. SOTALOL. [Suspect]
     Active Substance: SOTALOL
     Indication: ATRIAL FLUTTER
  3. SOTALOL. [Suspect]
     Active Substance: SOTALOL
     Indication: HEART RATE INCREASED
     Dosage: 80 MILLIGRAM, BID
     Dates: start: 201709
  4. BISOPROLOL [Suspect]
     Active Substance: BISOPROLOL
     Indication: PRODUCT USED FOR UNKNOWN INDICATION
     Dosage: UNK
  5. APIXABAN [Concomitant]
     Active Substance: APIXABAN
     Indication: ANTICOAGULANT THERAPY
     Dosage: 5 MILLIGRAM, QD
  6. FULTIUM D3 [Concomitant]
     Active Substance: CHOLECALCIFEROL
     Dosage: UNK
  7. ZOPICLONE [Concomitant]
     Active Substance: ZOPICLONE
     Dosage: 3.73 MILLIGRAM
  8. VITAMIN D                          /07503901/ [Concomitant]
     Active Substance: VITAMIN D NOS
     Dosage: UNK UNK, QW

REACTIONS (10)
  - Visual impairment [Unknown]
  - Disturbance in attention [Unknown]
  - Malaise [Unknown]
  - Drug ineffective [Unknown]
  - Migraine [Unknown]
  - Atrial flutter [Unknown]
  - Heart rate decreased [Recovered/Resolved]
  - Headache [Unknown]
  - Fatigue [Unknown]
  - Aura [Unknown]
